FAERS Safety Report 6089444-2 (Version None)
Quarter: 2009Q1

REPORT INFORMATION
  Report Type: 
  Country: None (occurrence: None)
  Receive Date: 20090224
  Receipt Date: 20090219
  Transmission Date: 20090719
  Serious: Yes (Other)
  Sender: FDA-Public Use
  Company Number: US-JNJCH-2009004826

PATIENT
  Age: 60 Year
  Sex: Male
  Weight: 81.6 kg

DRUGS (4)
  1. ZYRTEC [Suspect]
     Indication: COUGH
     Route: 048
     Dates: start: 20080901, end: 20081001
  2. SYNTHROID [Concomitant]
     Indication: HYPOTHYROIDISM
     Dosage: TEXT:125 MG ONCE DAILY
     Route: 065
  3. PROGRAFT [Concomitant]
     Indication: TRANSPLANT REJECTION
     Dosage: TEXT:UNKNOWN
     Route: 065
  4. ACYCLOVIR [Concomitant]
     Indication: DRUG USE FOR UNKNOWN INDICATION
     Dosage: TEXT:400 MG TWICE DAILY
     Route: 065

REACTIONS (3)
  - OFF LABEL USE [None]
  - POLLAKIURIA [None]
  - PROSTATOMEGALY [None]
